FAERS Safety Report 8374194-X (Version None)
Quarter: 2012Q2

REPORT INFORMATION
  Report Type: 
  Country: None (occurrence: None)
  Receive Date: 20120518
  Receipt Date: 20120518
  Transmission Date: 20120825
  Serious: Yes (Other)
  Sender: FDA-Public Use
  Company Number: None

PATIENT
  Age: 68 Year
  Sex: Female
  Weight: 121.564 kg

DRUGS (1)
  1. CETIRIZINE HCL [Suspect]
     Indication: DRY THROAT
     Dosage: 10MG 1 PER DAY PO
     Route: 048
     Dates: start: 20120515, end: 20120515

REACTIONS (6)
  - LETHARGY [None]
  - PERSONALITY CHANGE [None]
  - SOMNOLENCE [None]
  - SWOLLEN TONGUE [None]
  - CHROMATURIA [None]
  - DEPRESSION [None]
